FAERS Safety Report 5578753-9 (Version None)
Quarter: 2007Q4

REPORT INFORMATION
  Report Type: 
  Country: None (occurrence: None)
  Receive Date: 20071227
  Receipt Date: 20071215
  Transmission Date: 20080405
  Serious: Yes (Other)
  Sender: FDA-Public Use
  Company Number: CHPA2007US13726

PATIENT
  Age: 48 Year
  Sex: Female

DRUGS (1)
  1. MAALOX ANTACID/ANTIGAS MAX QDTABS ASST (NCH)(CALCIUM CARBONATE, SIMETH [Suspect]
     Indication: GASTROOESOPHAGEAL REFLUX DISEASE
     Dosage: 3-4 TABS, QD, ORAL
     Route: 048
     Dates: start: 20071209, end: 20071214

REACTIONS (3)
  - ANAPHYLACTIC SHOCK [None]
  - PRURITUS GENERALISED [None]
  - URTICARIA [None]
